FAERS Safety Report 10061076 (Version 2)
Quarter: 2014Q2

REPORT INFORMATION
  Report Type: Spontaneous
  Country: US (occurrence: US)
  Receive Date: 20140405
  Receipt Date: 20140405
  Transmission Date: 20141212
  Serious: Yes (Other)
  Sender: FDA-Public Use
  Company Number: US-GE HEALTHCARE MEDICAL DIAGNOSTICS-OSCN-PR-0806S-0334

PATIENT
  Age: 50 Year
  Sex: Male

DRUGS (11)
  1. MAGNEVIST [Suspect]
     Indication: PRODUCT USED FOR UNKNOWN INDICATION
     Route: 042
     Dates: start: 20021220, end: 20021220
  2. MAGNEVIST [Suspect]
     Route: 042
     Dates: start: 20030323, end: 20030323
  3. MAGNEVIST [Suspect]
     Route: 042
     Dates: start: 20030402, end: 20030402
  4. MAGNEVIST [Suspect]
     Route: 042
     Dates: start: 20031220, end: 20031220
  5. MAGNEVIST [Suspect]
     Route: 042
     Dates: start: 20050527, end: 20050527
  6. MAGNEVIST [Suspect]
     Route: 042
     Dates: start: 20050624, end: 20050624
  7. MAGNEVIST [Suspect]
     Route: 042
     Dates: start: 20050625, end: 20050625
  8. MAGNEVIST [Suspect]
     Route: 042
     Dates: start: 20050713, end: 20050713
  9. MAGNEVIST [Suspect]
     Route: 042
     Dates: start: 20060818, end: 20060818
  10. MAGNEVIST [Suspect]
     Route: 042
     Dates: start: 20050625, end: 20050625
  11. MAGNEVIST [Suspect]
     Route: 042
     Dates: start: 20060818, end: 20060818

REACTIONS (1)
  - Nephrogenic systemic fibrosis [Not Recovered/Not Resolved]
